FAERS Safety Report 6977949-9 (Version None)
Quarter: 2010Q3

REPORT INFORMATION
  Report Type: 
  Country: None (occurrence: None)
  Receive Date: 20100913
  Receipt Date: 20100901
  Transmission Date: 20110219
  Serious: Yes (Death, Hospitalization, Other)
  Sender: FDA-Public Use
  Company Number: US-PFIZER INC-2010081045

PATIENT
  Sex: Male

DRUGS (6)
  1. CHANTIX [Suspect]
     Indication: SMOKING CESSATION THERAPY
     Dosage: 0.5 MG, 2X/DAY
     Dates: start: 20070622
  2. LIPITOR [Concomitant]
     Indication: BLOOD CHOLESTEROL INCREASED
     Dosage: UNK
     Dates: start: 20030101, end: 20080101
  3. EFFEXOR [Concomitant]
     Indication: DEPRESSION
     Dosage: UNK
     Dates: start: 20030101, end: 20080101
  4. NEXIUM [Concomitant]
     Indication: GASTROINTESTINAL DISORDER THERAPY
     Dosage: UNK
     Dates: start: 20050101, end: 20080101
  5. PRAVACHOL [Concomitant]
     Indication: HYPERTENSION
     Dosage: UNK
     Dates: start: 20020101, end: 20080101
  6. MICARDIS [Concomitant]
     Indication: HYPERTENSION
     Dosage: UNK
     Dates: start: 20020101, end: 20080101

REACTIONS (3)
  - COMPLETED SUICIDE [None]
  - INTENTIONAL OVERDOSE [None]
  - SUICIDE ATTEMPT [None]
